FAERS Safety Report 7707520-2 (Version None)
Quarter: 2011Q3

REPORT INFORMATION
  Report Type: 
  Country: None (occurrence: None)
  Receive Date: 20110824
  Receipt Date: 20110812
  Transmission Date: 20111222
  Serious: Yes (Hospitalization)
  Sender: FDA-Public Use
  Company Number: BR-MEDIMMUNE-MEDI-0013487

PATIENT
  Sex: Female

DRUGS (7)
  1. SYNAGIS [Suspect]
     Route: 030
     Dates: start: 20100101
  2. SYNAGIS [Suspect]
     Route: 030
     Dates: start: 20100101, end: 20100101
  3. VITAMIN D [Concomitant]
     Route: 048
     Dates: start: 20100203
  4. DOMPERIDONE MALEATE [Concomitant]
     Route: 048
     Dates: start: 20100203
  5. ASCORBIC ACID [Concomitant]
     Route: 048
     Dates: start: 20100203
  6. FERROUS SULFATE TAB [Concomitant]
     Route: 048
     Dates: start: 20100203
  7. VITAMIN A [Concomitant]
     Route: 048
     Dates: start: 20100203

REACTIONS (2)
  - BRONCHIOLITIS [None]
  - URINARY TRACT INFECTION [None]
